FAERS Safety Report 5927189-7 (Version None)
Quarter: 2008Q4

REPORT INFORMATION
  Report Type: 
  Country: None (occurrence: None)
  Receive Date: 20081022
  Receipt Date: 20081010
  Transmission Date: 20090506
  Serious: Yes (Other)
  Sender: FDA-Public Use
  Company Number: DE-PFIZER INC-2008082718

PATIENT
  Age: 53 Year
  Sex: Female

DRUGS (10)
  1. SILDENAFIL CITRATE [Suspect]
     Indication: RESPIRATORY DISTRESS
     Route: 048
  2. FUROSEMIDE [Concomitant]
  3. METOLAZONE [Concomitant]
  4. LISINOPRIL [Concomitant]
  5. ATENOLOL [Concomitant]
  6. ACETYLSALICYLIC ACID SRT [Concomitant]
  7. ACETAMINOPHEN [Concomitant]
  8. SIMVASTATIN [Concomitant]
  9. OMEPRAZOLE [Concomitant]
  10. INSULIN [Concomitant]

REACTIONS (1)
  - THROMBOCYTOPENIA [None]
